FAERS Safety Report 6571234-5 (Version None)
Quarter: 2010Q1

REPORT INFORMATION
  Report Type: 
  Country: None (occurrence: None)
  Receive Date: 20100204
  Receipt Date: 20100129
  Transmission Date: 20100710
  Serious: Yes (Death)
  Sender: FDA-Public Use
  Company Number: US-GILEAD-2010-0026775

PATIENT
  Sex: Male

DRUGS (13)
  1. LETAIRIS [Suspect]
     Indication: PULMONARY ARTERIAL HYPERTENSION
     Route: 048
     Dates: start: 20071030
  2. LASIX [Concomitant]
  3. LISINOPRIL [Concomitant]
  4. ZOCOR [Concomitant]
  5. UROXATRAL [Concomitant]
  6. LYRICA [Concomitant]
  7. TRAMADOL [Concomitant]
  8. FOLIC ACID [Concomitant]
  9. DESOXIMETASONE [Concomitant]
  10. TACLONEX [Concomitant]
  11. LEXAPRO [Concomitant]
  12. ASPIRIN [Concomitant]
  13. LUNESTA [Concomitant]

REACTIONS (1)
  - DEATH [None]
